FAERS Safety Report 4650375-3 (Version None)
Quarter: 2005Q2

REPORT INFORMATION
  Report Type: 
  Country: None (occurrence: None)
  Receive Date: 20050429
  Receipt Date: 20050415
  Transmission Date: 20051028
  Serious: No
  Sender: FDA-Public Use
  Company Number: 2005AP02307

PATIENT
  Age: 34 Year
  Sex: Female

DRUGS (4)
  1. QUETIAPINE [Suspect]
     Dosage: 200 MG BID PO
     Route: 048
     Dates: start: 20041104, end: 20050329
  2. LORAZEPAM [Concomitant]
  3. MOCLOBEMIDE [Concomitant]
  4. TEMAZEPAM [Concomitant]

REACTIONS (3)
  - INTENTIONAL SELF-INJURY [None]
  - LIBIDO INCREASED [None]
  - SELF-INJURIOUS IDEATION [None]
